FAERS Safety Report 8817460 (Version 1)
Quarter: 2012Q4

REPORT INFORMATION
  Report Type: 
  Country: MX (occurrence: MX)
  Receive Date: 20121001
  Receipt Date: 20121001
  Transmission Date: 20130627
  Serious: Yes (Death, Hospitalization)
  Sender: FDA-Public Use
  Company Number: MX-SANOFI-AVENTIS-2012SA069042

PATIENT
  Age: 86 Year
  Sex: Female

DRUGS (2)
  1. LANTUS [Suspect]
     Indication: TYPE 2 DIABETES MELLITUS
     Route: 058
     Dates: start: 2007, end: 20120614
  2. ADALAT OROS [Concomitant]
     Indication: HYPERTENSION ARTERIAL
     Route: 048
     Dates: start: 2004, end: 20120614

REACTIONS (2)
  - Disease complication [Fatal]
  - Respiratory failure [Fatal]
